FAERS Safety Report 7420474-1 (Version None)
Quarter: 2011Q2

REPORT INFORMATION
  Report Type: 
  Country: None (occurrence: None)
  Receive Date: 20110418
  Receipt Date: 20110408
  Transmission Date: 20111010
  Serious: Yes (Hospitalization)
  Sender: FDA-Public Use
  Company Number: JP-BAXTER-2011BH006768

PATIENT
  Age: 52 Year
  Sex: Female

DRUGS (8)
  1. DEXAMETHASONE SODIUM PHOSPHATE [Concomitant]
     Indication: BREAST CANCER
     Route: 041
     Dates: start: 20110210
  2. CYCLOPHOSPHAMIDE [Suspect]
     Indication: BREAST CANCER
     Route: 041
     Dates: start: 20110210, end: 20110210
  3. EMEND [Concomitant]
     Indication: BREAST CANCER
     Route: 048
     Dates: start: 20110210, end: 20110210
  4. DEXAMETHASONE [Concomitant]
     Indication: BREAST CANCER
     Route: 048
     Dates: start: 20110211, end: 20110213
  5. DOXORUBICIN HCL [Suspect]
     Indication: BREAST CANCER
     Route: 041
     Dates: start: 20110210, end: 20110210
  6. ALOXI [Concomitant]
     Indication: BREAST CANCER
     Route: 041
     Dates: start: 20110210, end: 20110210
  7. SELBEX [Concomitant]
     Indication: BREAST CANCER
     Route: 048
     Dates: start: 20110211, end: 20110213
  8. EMEND [Concomitant]
     Route: 048
     Dates: start: 20110211, end: 20110212

REACTIONS (1)
  - PANCREATITIS ACUTE [None]
